FAERS Safety Report 4875877-6 (Version None)
Quarter: 2006Q1

REPORT INFORMATION
  Report Type: 
  Country: None (occurrence: None)
  Receive Date: 20060109
  Receipt Date: 20051213
  Transmission Date: 20060701
  Serious: Yes (Hospitalization)
  Sender: FDA-Public Use
  Company Number: US-MERCK-0512USA02082

PATIENT
  Age: 29 Year
  Sex: Female
  Weight: 82 kg

DRUGS (4)
  1. VIOXX [Suspect]
     Indication: SHOULDER PAIN
     Route: 048
     Dates: start: 19990601, end: 20020101
  2. VIOXX [Suspect]
     Indication: NECK PAIN
     Route: 048
     Dates: start: 19990601, end: 20020101
  3. TYLENOL [Concomitant]
     Route: 065
  4. CODEINE [Concomitant]
     Route: 065

REACTIONS (12)
  - ADVERSE EVENT [None]
  - ARTHROPATHY [None]
  - CARDIAC DISORDER [None]
  - CARDIOVASCULAR DISORDER [None]
  - LUNG DISORDER [None]
  - MASS [None]
  - NEOPLASM [None]
  - OVERDOSE [None]
  - SCAR [None]
  - SHOULDER OPERATION [None]
  - VARICES OESOPHAGEAL [None]
  - VULVAL CANCER [None]
